FAERS Safety Report 6508638-2 (Version None)
Quarter: 2009Q4

REPORT INFORMATION
  Report Type: 
  Country: None (occurrence: None)
  Receive Date: 20091221
  Receipt Date: 20091211
  Transmission Date: 20100525
  Serious: Yes (Other)
  Sender: FDA-Public Use
  Company Number: BR-ELI_LILLY_AND_COMPANY-BR200912002993

PATIENT
  Age: 63 Year
  Sex: Male

DRUGS (2)
  1. CIALIS [Suspect]
     Dosage: UNK, UNKNOWN
     Route: 065
  2. ACETYLSALICYLIC ACID [Concomitant]
     Dosage: UNK, UNKNOWN
     Route: 065

REACTIONS (2)
  - HAEMOPTYSIS [None]
  - VASCULAR OPERATION [None]
